FAERS Safety Report 25471258 (Version 1)
Quarter: 2025Q2

REPORT INFORMATION
  Report Type: Spontaneous
  Country: US (occurrence: US)
  Receive Date: 20250624
  Receipt Date: 20250624
  Transmission Date: 20250717
  Serious: No
  Sender: BIOVITRUM
  Company Number: US-BIOVITRUM-2025-US-008804

PATIENT
  Age: 74 Year
  Sex: Male

DRUGS (18)
  1. VONJO [Suspect]
     Active Substance: PACRITINIB
     Indication: Myelofibrosis
     Route: 048
     Dates: start: 20250606
  2. VORICONAZOLE [Suspect]
     Active Substance: VORICONAZOLE
     Indication: Product used for unknown indication
  3. VORICONAZOLE [Suspect]
     Active Substance: VORICONAZOLE
  4. CARBOXYMETHYLCELLULOSE [Concomitant]
     Active Substance: CARBOXYMETHYLCELLULOSE
     Indication: Product used for unknown indication
  5. CHLORBEXIDINE GLUCONATE [Concomitant]
     Indication: Product used for unknown indication
  6. CLOTRIMAZOLE [Concomitant]
     Active Substance: CLOTRIMAZOLE
     Indication: Product used for unknown indication
  7. DICLOFENAC [Concomitant]
     Active Substance: DICLOFENAC
     Indication: Product used for unknown indication
  8. FAMOTIDINE [Concomitant]
     Active Substance: FAMOTIDINE
     Indication: Product used for unknown indication
  9. METOPROLOL TARTRATE [Concomitant]
     Active Substance: METOPROLOL TARTRATE
     Indication: Product used for unknown indication
  10. NITROGLYCERIN [Concomitant]
     Active Substance: NITROGLYCERIN
     Indication: Product used for unknown indication
     Route: 060
  11. NUTRITIONAL SUPPLEMENTS (ENSURE MAX PROTEIN OR) [Concomitant]
     Indication: Product used for unknown indication
  12. NUTRITIONAL SUPPLEMENTS (GLUCERNA) [Concomitant]
     Indication: Product used for unknown indication
  13. ONDANSETRON [Concomitant]
     Active Substance: ONDANSETRON
     Indication: Product used for unknown indication
  14. ROSUVASTATIN [Concomitant]
     Active Substance: ROSUVASTATIN
     Indication: Product used for unknown indication
  15. SIMETHICONE (DIMETHICONE) [Concomitant]
     Active Substance: DIMETHICONE
     Indication: Product used for unknown indication
  16. SODIUM CHLORIDE [Concomitant]
     Active Substance: SODIUM CHLORIDE
     Indication: Product used for unknown indication
  17. TOPIRAMATE [Concomitant]
     Active Substance: TOPIRAMATE
     Indication: Product used for unknown indication
  18. MULTIVITAMIN WITH MINERALS (NO IRON) [Concomitant]
     Indication: Product used for unknown indication

REACTIONS (4)
  - Product use issue [Unknown]
  - Drug interaction [Unknown]
  - Off label use [Not Recovered/Not Resolved]
  - Insurance issue [Unknown]

NARRATIVE: CASE EVENT DATE: 20250606
